FAERS Safety Report 4270229-4 (Version None)
Quarter: 2004Q1

REPORT INFORMATION
  Report Type: 
  Country: None (occurrence: None)
  Receive Date: 20040113
  Receipt Date: 20040113
  Transmission Date: 20041129
  Serious: Yes (Hospitalization)
  Sender: FDA-Public Use
  Company Number: None

PATIENT
  Age: 53 Year
  Sex: Male

DRUGS (8)
  1. FELODIPINE [Suspect]
     Indication: HYPERTENSION
     Dosage: 10 MG QD
     Dates: start: 19960201
  2. HYDROCHLOROTHIAZIDE [Suspect]
     Indication: HYPERTENSION
     Dosage: 25 MG QAM
     Dates: start: 20011001
  3. BACLOFEN [Concomitant]
  4. LISINOPRIL [Concomitant]
  5. ACIPHEX [Concomitant]
  6. NORTRIPTYLINE HCL [Concomitant]
  7. ZOCOR [Concomitant]
  8. THIAMINE [Concomitant]

REACTIONS (1)
  - SYNCOPE [None]
